FAERS Safety Report 10595628 (Version 6)
Quarter: 2015Q3

REPORT INFORMATION
  Report Type: Spontaneous
  Country: US (occurrence: US)
  Receive Date: 20141120
  Receipt Date: 20150707
  Transmission Date: 20151125
  Serious: Yes (Disabling, Other)
  Sender: FDA-Public Use
  Company Number: US-009507513-1204USA04457

PATIENT
  Sex: Male
  Weight: 74.38 kg

DRUGS (3)
  1. PROPECIA [Suspect]
     Active Substance: FINASTERIDE
     Indication: ANDROGENETIC ALOPECIA
     Dosage: 1 MG, UNK
     Route: 048
     Dates: start: 20020123, end: 20060304
  2. PROSCAR [Suspect]
     Active Substance: FINASTERIDE
     Indication: ALOPECIA
     Dosage: 5 MG, QD
     Route: 048
     Dates: start: 20060216, end: 20061130
  3. FINASTERIDE. [Suspect]
     Active Substance: FINASTERIDE
     Indication: ALOPECIA
     Dosage: 1/4 TABLET DAILY
     Route: 048
     Dates: start: 20130510, end: 201306

REACTIONS (29)
  - Blood testosterone decreased [Unknown]
  - Anxiety [Unknown]
  - Sexual dysfunction [Unknown]
  - Dry eye [Unknown]
  - Wrong technique in product usage process [Recovered/Resolved]
  - Cough [Unknown]
  - Abdominal pain upper [Unknown]
  - Vitamin D deficiency [Unknown]
  - Pain [Unknown]
  - Loss of libido [Unknown]
  - Hyperlipidaemia [Unknown]
  - Acne [Unknown]
  - Erectile dysfunction [Not Recovered/Not Resolved]
  - Cognitive disorder [Unknown]
  - Hypersensitivity [Unknown]
  - Sinus congestion [Unknown]
  - Drug administration error [Unknown]
  - Sinusitis [Unknown]
  - Infection [Unknown]
  - Hypogonadism [Not Recovered/Not Resolved]
  - Ejaculation disorder [Unknown]
  - Skin disorder [Unknown]
  - Depression [Unknown]
  - Abdominal pain lower [Unknown]
  - Urinary tract infection [Unknown]
  - Fatigue [Unknown]
  - Erectile dysfunction [Unknown]
  - Ejaculation failure [Unknown]
  - Pruritus [Unknown]

NARRATIVE: CASE EVENT DATE: 200305
